FAERS Safety Report 10913170 (Version 8)
Quarter: 2015Q4

REPORT INFORMATION
  Report Type: Spontaneous
  Country: US (occurrence: US)
  Receive Date: 20150313
  Receipt Date: 20151105
  Transmission Date: 20160304
  Serious: Yes (Hospitalization, Other)
  Sender: FDA-Public Use
  Company Number: US-MERCK-1503USA006226

PATIENT
  Sex: Female
  Weight: 60.77 kg

DRUGS (6)
  1. FOSAMAX [Suspect]
     Active Substance: ALENDRONATE SODIUM
     Indication: OSTEOPENIA
     Dosage: 70 MG, QW
     Route: 048
     Dates: start: 20031218, end: 20070313
  2. ALENDRONATE SODIUM. [Suspect]
     Active Substance: ALENDRONATE SODIUM
     Indication: OSTEOPENIA
     Dosage: UNK
     Route: 048
     Dates: start: 2000
  3. ALENDRONATE SODIUM. [Suspect]
     Active Substance: ALENDRONATE SODIUM
     Indication: OSTEOPOROSIS
  4. FOSAMAX [Suspect]
     Active Substance: ALENDRONATE SODIUM
     Indication: OSTEOPOROSIS
  5. BONIVA [Suspect]
     Active Substance: IBANDRONATE SODIUM
     Indication: OSTEOPENIA
     Dosage: 150 MG, QM
     Route: 048
     Dates: start: 20070329, end: 201111
  6. ESTRADIOL. [Concomitant]
     Active Substance: ESTRADIOL
     Indication: HORMONE REPLACEMENT THERAPY
     Dosage: UNK
     Route: 065
     Dates: start: 2000

REACTIONS (24)
  - Cholecystectomy [Unknown]
  - Hypertriglyceridaemia [Unknown]
  - Sleep disorder [Unknown]
  - Haemorrhagic anaemia [Unknown]
  - Intervertebral disc degeneration [Unknown]
  - Blood cholesterol increased [Unknown]
  - Lumbar vertebral fracture [Unknown]
  - Arthritis [Unknown]
  - Shock [Unknown]
  - Scoliosis [Unknown]
  - Calcium deficiency [Unknown]
  - Hysterectomy [Unknown]
  - Intervertebral disc displacement [Unknown]
  - Femur fracture [Recovering/Resolving]
  - Low turnover osteopathy [Unknown]
  - Sinus tachycardia [Unknown]
  - Hypotension [Unknown]
  - Bursitis [Unknown]
  - Headache [Unknown]
  - Vitamin D deficiency [Unknown]
  - Bladder neck suspension [Unknown]
  - Appendicectomy [Unknown]
  - Cough [Unknown]
  - Arthralgia [Unknown]

NARRATIVE: CASE EVENT DATE: 2007
